FAERS Safety Report 8343921-X (Version None)
Quarter: 2012Q2

REPORT INFORMATION
  Report Type: 
  Country: None (occurrence: None)
  Receive Date: 20120508
  Receipt Date: 20120501
  Transmission Date: 20120825
  Serious: Yes (Other)
  Sender: FDA-Public Use
  Company Number: US-BAYER-2011-120751

PATIENT
  Age: 38 Year
  Sex: Female
  Weight: 86.168 kg

DRUGS (11)
  1. DROSPIRENONE AND ETHINYL ESTRADIOL [Suspect]
     Indication: PREMENSTRUAL SYNDROME
     Dosage: UNK UNK, QD
     Route: 048
     Dates: start: 20081217, end: 20090407
  2. GABAPENTIN [Concomitant]
  3. VICODIN ES [Concomitant]
     Indication: PAIN
     Dosage: UNK UNK, PRN
  4. LEXAPRO [Concomitant]
  5. MOTRIN [Concomitant]
     Dosage: UNK UNK, PRN
  6. PROVERA [Concomitant]
     Dosage: 10 MG, [TIMES] 10
  7. MEDROXYPROGESTERONE ACETATE [Concomitant]
  8. XANAX [Concomitant]
  9. TYLENOL (CAPLET) [Concomitant]
     Dosage: UNK UNK, PRN
  10. LOVAZA [Concomitant]
  11. NAPROSYN [Concomitant]

REACTIONS (8)
  - PULMONARY EMBOLISM [None]
  - CHOLECYSTITIS CHRONIC [None]
  - GALLBLADDER INJURY [None]
  - EMOTIONAL DISTRESS [None]
  - GALLBLADDER PAIN [None]
  - INJURY [None]
  - DEEP VEIN THROMBOSIS [None]
  - ANHEDONIA [None]
